FAERS Safety Report 8557213-7 (Version None)
Quarter: 2012Q3

REPORT INFORMATION
  Report Type: 
  Country: None (occurrence: None)
  Receive Date: 20120801
  Receipt Date: 20120730
  Transmission Date: 20120928
  Serious: Yes (Hospitalization)
  Sender: FDA-Public Use
  Company Number: PHHY2012DE065842

PATIENT
  Age: 50 Year
  Sex: Male

DRUGS (2)
  1. PREDNISONE TAB [Concomitant]
     Dosage: 25 MG, UNK
  2. TASIGNA [Suspect]
     Indication: CHRONIC MYELOID LEUKAEMIA
     Dosage: 600 MG, PER DAY
     Route: 048
     Dates: start: 20120117

REACTIONS (1)
  - POLYARTERITIS NODOSA [None]
